FAERS Safety Report 7396181-0 (Version None)
Quarter: 2011Q2

REPORT INFORMATION
  Report Type: 
  Country: None (occurrence: None)
  Receive Date: 20110406
  Receipt Date: 20110324
  Transmission Date: 20111010
  Serious: Yes (Hospitalization)
  Sender: FDA-Public Use
  Company Number: US-ELI_LILLY_AND_COMPANY-US201002004231

PATIENT
  Sex: Female

DRUGS (22)
  1. OMEGA 3-6-9 [Concomitant]
  2. LACTAID [Concomitant]
     Dosage: UNK, PRN
  3. PROVIGIL [Concomitant]
     Indication: NARCOLEPSY
     Dosage: 100 MG, BID
  4. CALCIUM [Concomitant]
     Dosage: 600 MG, QD
  5. C-VITAMIN [Concomitant]
  6. ACIDOPHILUS [Concomitant]
  7. FORTEO [Suspect]
     Indication: OSTEOPOROSIS
     Dosage: 20 UG, DAILY (1/D)
     Dates: start: 20090220
  8. VIVELLE-DOT [Concomitant]
     Dosage: 0.05 MG, 2/W
  9. CALCIUM [Concomitant]
     Dosage: 1200 MG, QD
  10. VITAMIN D [Concomitant]
     Dosage: 3000 IU, DAILY (1/D)
  11. ACIPHEX [Concomitant]
     Dosage: 20 MG, QD
  12. PREMARIN [Concomitant]
     Indication: ARTHRALGIA
     Dosage: 4.25 G, 2/W
  13. LACTOSE [Concomitant]
     Dosage: UNK, QD
  14. FORTEO [Suspect]
     Dosage: 20 UG, DAILY (1/D)
  15. FORTEO [Suspect]
     Dosage: 20 UG, DAILY (1/D)
  16. LEVOTHYROXINE SODIUM [Concomitant]
     Dosage: .05 MG, QD
  17. FORTEO [Suspect]
     Dosage: 20 UG, DAILY (1/D)
     Dates: end: 20110220
  18. GLUCOSAMINE + CHONDROITIN [Concomitant]
     Indication: PAIN
  19. FORTEO [Suspect]
     Dosage: 20 UG, DAILY (1/D)
  20. VITAMIN D [Concomitant]
     Dosage: 50000 IU, WEEKLY (1/W)
  21. NASONEX [Concomitant]
     Dosage: 100 UG, QD
  22. BIOTIN [Concomitant]

REACTIONS (46)
  - TENDON RUPTURE [None]
  - RHINORRHOEA [None]
  - SKIN INJURY [None]
  - MUSCLE ATROPHY [None]
  - DYSPNOEA [None]
  - DENTAL DISCOMFORT [None]
  - HYPERSOMNIA [None]
  - MYALGIA [None]
  - EPISTAXIS [None]
  - SKIN WRINKLING [None]
  - SKIN DISORDER [None]
  - PAIN IN EXTREMITY [None]
  - FALL [None]
  - INFLAMMATION [None]
  - FATIGUE [None]
  - ONYCHOCLASIS [None]
  - VITAMIN D DEFICIENCY [None]
  - DEVICE MISUSE [None]
  - GAIT DISTURBANCE [None]
  - ANXIETY [None]
  - NEURALGIA [None]
  - NAIL BED BLEEDING [None]
  - MEDICATION ERROR [None]
  - ARTHRALGIA [None]
  - PAIN [None]
  - MUSCULAR WEAKNESS [None]
  - BLOOD CALCIUM INCREASED [None]
  - KNEE ARTHROPLASTY [None]
  - MUSCLE SPASMS [None]
  - DEPRESSION [None]
  - NARCOLEPSY [None]
  - BALANCE DISORDER [None]
  - JOINT INJURY [None]
  - ARTHROPATHY [None]
  - BONE PAIN [None]
  - ASTHENIA [None]
  - OEDEMA PERIPHERAL [None]
  - DIZZINESS [None]
  - DIARRHOEA [None]
  - DYSPHONIA [None]
  - HYPERSENSITIVITY [None]
  - COUGH [None]
  - HERPES ZOSTER [None]
  - BONE CYST [None]
  - ABDOMINAL PAIN [None]
  - JAW DISORDER [None]
